FAERS Safety Report 14485636 (Version 1)
Quarter: 2018Q1

REPORT INFORMATION
  Report Type: Spontaneous
  Country: US (occurrence: US)
  Receive Date: 20180203
  Receipt Date: 20180203
  Transmission Date: 20180509
  Serious: Yes (Other)
  Sender: FDA-Public Use
  Company Number: None

PATIENT
  Sex: Female
  Weight: 88.65 kg

DRUGS (9)
  1. B2 [Concomitant]
  2. TOPIRAMATE 50MG [Suspect]
     Active Substance: TOPIRAMATE
     Indication: MIGRAINE
     Dosage: ?          QUANTITY:1 TABLET(S);?
     Route: 048
  3. ZYRTEC [Concomitant]
     Active Substance: CETIRIZINE HYDROCHLORIDE
  4. KNEE SLEEVE [Concomitant]
  5. BILATERAL WRIST SPLINTS [Concomitant]
  6. FLONASE [Concomitant]
     Active Substance: FLUTICASONE PROPIONATE
  7. COQ10 [Concomitant]
     Active Substance: UBIDECARENONE
  8. MAGNESIUM [Concomitant]
     Active Substance: MAGNESIUM
  9. TRI-FLEX JOINT HEALTH [Concomitant]

REACTIONS (5)
  - Irritable bowel syndrome [None]
  - Oesophageal haemorrhage [None]
  - Abdominal pain [None]
  - Gastric haemorrhage [None]
  - Diarrhoea [None]
